FAERS Safety Report 15750251 (Version 1)
Quarter: 2018Q4

REPORT INFORMATION
  Report Type: Spontaneous
  Country: GB (occurrence: GB)
  Receive Date: 20181221
  Receipt Date: 20181221
  Transmission Date: 20190205
  Serious: Yes (Other)
  Sender: FDA-Public Use
  Company Number: GB-IPSEN BIOPHARMACEUTICALS, INC.-2018-19526

PATIENT
  Age: 57 Year
  Sex: Female

DRUGS (2)
  1. AZZALURE [Suspect]
     Active Substance: BOTULINUM TOXIN TYPE A
     Indication: SKIN WRINKLING
     Dosage: 120 UNITS
     Route: 030
     Dates: start: 20181203, end: 20181203
  2. AZZALURE [Suspect]
     Active Substance: BOTULINUM TOXIN TYPE A
     Indication: SKIN WRINKLING

REACTIONS (4)
  - Eye pain [Unknown]
  - Headache [Unknown]
  - Overdose [Unknown]
  - Eyelid ptosis [Not Recovered/Not Resolved]

NARRATIVE: CASE EVENT DATE: 201812
